FAERS Safety Report 16857313 (Version 1)
Quarter: 2019Q3

REPORT INFORMATION
  Report Type: Spontaneous
  Country: US (occurrence: US)
  Receive Date: 20190926
  Receipt Date: 20190926
  Transmission Date: 20191005
  Serious: Yes (Other)
  Sender: FDA-Public Use
  Company Number: US-AMGEN-USASP2019155141

PATIENT
  Age: 58 Year
  Sex: Female

DRUGS (3)
  1. BABY ASPIRIN [Concomitant]
     Active Substance: ASPIRIN
     Indication: THROMBOSIS
     Dosage: UNK
  2. PROLIA [Suspect]
     Active Substance: DENOSUMAB
     Indication: OSTEOPOROSIS POSTMENOPAUSAL
     Dosage: 60 MILLIGRAM, Q6MO
     Route: 065
     Dates: start: 2018
  3. RAMIPRIL. [Concomitant]
     Active Substance: RAMIPRIL
     Indication: ARTERIAL OCCLUSIVE DISEASE
     Dosage: UNK
     Dates: start: 201711

REACTIONS (8)
  - Bone loss [Not Recovered/Not Resolved]
  - Nerve compression [Recovered/Resolved]
  - Dizziness [Recovered/Resolved]
  - Vision blurred [Recovered/Resolved]
  - Hypoaesthesia [Recovered/Resolved]
  - Blood pressure increased [Recovered/Resolved]
  - Gingival recession [Not Recovered/Not Resolved]
  - Autoimmune disorder [Recovered/Resolved]

NARRATIVE: CASE EVENT DATE: 2018
